FAERS Safety Report 7171137-1 (Version None)
Quarter: 2010Q4

REPORT INFORMATION
  Report Type: 
  Country: None (occurrence: None)
  Receive Date: 20101123
  Receipt Date: 20100928
  Transmission Date: 20110411
  Serious: No
  Sender: FDA-Public Use
  Company Number: 019548

PATIENT
  Sex: Female
  Weight: 82 kg

DRUGS (12)
  1. CIMZIA [Suspect]
     Indication: CROHN'S DISEASE
     Dosage: 400 MG 1X/2 WEEKS; SUBCUTANEOUS
     Route: 058
     Dates: start: 20100910
  2. CARBAMAZEPINE [Concomitant]
  3. WARFARIN [Concomitant]
  4. FUROSEMIDE [Concomitant]
  5. POTASSIUM CHLORIDE [Concomitant]
  6. SYNTHROID [Concomitant]
  7. AMLODIPINE [Concomitant]
  8. LISINOPRIL [Concomitant]
  9. SIMVASTATIN [Concomitant]
  10. BENADRYL [Concomitant]
  11. ACIDOPHILUS [Concomitant]
  12. MULTIPLE VITAMINS [Concomitant]

REACTIONS (1)
  - HEADACHE [None]
